FAERS Safety Report 8276298-9 (Version None)
Quarter: 2012Q2

REPORT INFORMATION
  Report Type: 
  Country: None (occurrence: None)
  Receive Date: 20120412
  Receipt Date: 20120411
  Transmission Date: 20120825
  Serious: Yes (Death)
  Sender: FDA-Public Use
  Company Number: PHHY2012CY030591

PATIENT
  Age: 88 Year
  Sex: Male

DRUGS (2)
  1. TASIGNA [Suspect]
     Indication: CHRONIC MYELOID LEUKAEMIA
     Dosage: 800 MG, DAILY
     Route: 048
  2. TASIGNA [Suspect]
     Indication: CHROMOSOME ANALYSIS ABNORMAL

REACTIONS (1)
  - CEREBROVASCULAR ACCIDENT [None]
